FAERS Safety Report 9499580 (Version 1)
Quarter: 2013Q1

REPORT INFORMATION
  Report Type: Spontaneous
  Country: US (occurrence: None)
  Receive Date: 20130107
  Receipt Date: 20130107
  Transmission Date: 20140127
  Serious: No
  Sender: FDA-Public Use
  Company Number: PHEH2012US020786

PATIENT
  Age: 56 Year
  Sex: Male
  Weight: 75.3 kg

DRUGS (4)
  1. GILENYA (FINGOLIMOD) CAPSULE, 0.5 MG [Suspect]
     Indication: MULTIPLE SCLEROSIS
     Route: 048
     Dates: start: 20120501
  2. FLOMOX (CEFCAPENE PIVOXIL HYDROCHLORIDE) [Concomitant]
  3. DITROPAN (OXYBUTYNIN HYDROCHLORIDE) [Concomitant]
  4. FAMPRIDINE (FAMPRIDINE) [Concomitant]

REACTIONS (1)
  - Lacrimation increased [None]
